FAERS Safety Report 7386552-0 (Version None)
Quarter: 2011Q1

REPORT INFORMATION
  Report Type: 
  Country: None (occurrence: None)
  Receive Date: 20110331
  Receipt Date: 20110324
  Transmission Date: 20110831
  Serious: Yes (Life-Threatening, Hospitalization)
  Sender: FDA-Public Use
  Company Number: FR-ROCHE-763514

PATIENT
  Sex: Female
  Weight: 72.5 kg

DRUGS (10)
  1. ROACTEMRA [Suspect]
     Route: 042
     Dates: start: 20100705
  2. ROACTEMRA [Suspect]
     Indication: RHEUMATOID ARTHRITIS
     Dosage: FORM:INFUSION, TOTAL DOSE: 580 MG
     Route: 042
     Dates: start: 20090212
  3. PARACETAMOL [Concomitant]
     Indication: RHEUMATOID ARTHRITIS
     Route: 048
     Dates: start: 20090101
  4. ROACTEMRA [Suspect]
     Route: 042
     Dates: start: 20100830
  5. PREVISCAN [Concomitant]
     Indication: PHLEBITIS
     Dosage: FREQUENCY: 3/4 TABLETS DAILY.
     Route: 048
     Dates: start: 20101123
  6. PLAQUENIL [Concomitant]
     Indication: RHEUMATOID ARTHRITIS
     Route: 048
     Dates: start: 19900101
  7. CORTANCYL [Concomitant]
     Indication: RHEUMATOID ARTHRITIS
     Route: 048
     Dates: start: 19870101
  8. ROACTEMRA [Suspect]
     Route: 042
     Dates: start: 20100802
  9. ROACTEMRA [Suspect]
     Dosage: LAST DOSE PRIOR TO THE SAE: 18 FEBRUARY 2011.
     Route: 042
     Dates: start: 20100927
  10. LAMALINE [Concomitant]
     Indication: RHEUMATOID ARTHRITIS
     Route: 048
     Dates: start: 20090101

REACTIONS (13)
  - MEAN CELL HAEMOGLOBIN DECREASED [None]
  - BLOOD POTASSIUM DECREASED [None]
  - BLOOD SODIUM DECREASED [None]
  - DYSARTHRIA [None]
  - HAEMOGLOBIN DECREASED [None]
  - MONOPARESIS [None]
  - HAEMORRHAGIC STROKE [None]
  - CEREBRAL HAEMORRHAGE [None]
  - VIITH NERVE PARALYSIS [None]
  - WHITE BLOOD CELL COUNT DECREASED [None]
  - NEUTROPHIL COUNT DECREASED [None]
  - HAEMATOCRIT DECREASED [None]
  - MEAN CELL VOLUME DECREASED [None]
